FAERS Safety Report 6630557-1 (Version None)
Quarter: 2010Q1

REPORT INFORMATION
  Report Type: 
  Country: None (occurrence: None)
  Receive Date: 20100311
  Receipt Date: 20091006
  Transmission Date: 20100710
  Serious: Yes (Other)
  Sender: FDA-Public Use
  Company Number: US-BIOGENIDEC-2009BI000352

PATIENT
  Age: 20 Year
  Sex: Female

DRUGS (5)
  1. AVONEX [Suspect]
     Indication: MULTIPLE SCLEROSIS
     Route: 030
     Dates: start: 20070801, end: 20081215
  2. LIDOCAINE AND PRILOCAIN TOPICAL CREAM [Concomitant]
     Indication: PREMEDICATION
  3. TYLENOL-500 [Concomitant]
  4. IBUPROFEN [Concomitant]
  5. VITAMIN TAB [Concomitant]

REACTIONS (1)
  - ABORTION SPONTANEOUS [None]
